FAERS Safety Report 9162829 (Version 1)
Quarter: 2013Q1

REPORT INFORMATION
  Report Type: Spontaneous
  Country: ZA (occurrence: None)
  Receive Date: 20130225
  Receipt Date: 20130225
  Transmission Date: 20140127
  Serious: No
  Sender: FDA-Public Use
  Company Number: B0869886A

PATIENT
  Age: 42 Year
  Sex: Male

DRUGS (4)
  1. LAMIVUDINE [Suspect]
     Indication: HIV INFECTION
     Dates: start: 201003
  2. STAVUDINE [Suspect]
     Indication: HIV INFECTION
     Dates: start: 201003
  3. EFAVIRENZ [Suspect]
     Indication: HIV INFECTION
  4. TENOFOVIR [Suspect]
     Indication: HIV INFECTION

REACTIONS (2)
  - Alcohol use [None]
  - Transaminases increased [None]
